FAERS Safety Report 7216543-1 (Version None)
Quarter: 2011Q1

REPORT INFORMATION
  Report Type: 
  Country: None (occurrence: None)
  Receive Date: 20110109
  Receipt Date: 20101227
  Transmission Date: 20110831
  Serious: Yes (Other)
  Sender: FDA-Public Use
  Company Number: JP-BRISTOL-MYERS SQUIBB COMPANY-15472103

PATIENT
  Age: 17 Year
  Sex: Male

DRUGS (5)
  1. CYCLOPHOSPHAMIDE [Suspect]
     Dosage: 50 MG/KG X4
  2. VEPESID [Suspect]
     Route: 048
  3. MITOXANTRONE HYDROCHLORIDE [Suspect]
     Dosage: 10 MG/M2 X2
  4. CYCLOSPORINE [Concomitant]
  5. METHOTREXATE [Concomitant]

REACTIONS (1)
  - THYROID CANCER [None]
